FAERS Safety Report 7603701-7 (Version None)
Quarter: 2011Q3

REPORT INFORMATION
  Report Type: 
  Country: None (occurrence: None)
  Receive Date: 20110711
  Receipt Date: 20110711
  Transmission Date: 20111222
  Serious: Yes (Disabling)
  Sender: FDA-Public Use
  Company Number: None

PATIENT
  Sex: Female
  Weight: 74.8435 kg

DRUGS (3)
  1. DEPO-MEDROL [Suspect]
     Indication: ANAESTHESIA
     Dosage: ANESTHIA EPIDURAL (ONE TIME)
     Route: 008
     Dates: start: 19890101
  2. MYELOGRAM DYES [Suspect]
     Indication: X-RAY
     Dosage: SPINAL CONTRAST EPIDURAL (ONE TIME)
     Route: 008
     Dates: start: 19850101
  3. MYELOGRAM DYES [Suspect]
     Indication: BACK PAIN
     Dosage: SPINAL CONTRAST EPIDURAL (ONE TIME)
     Route: 008
     Dates: start: 19850101

REACTIONS (5)
  - ARACHNOIDITIS [None]
  - DEPRESSION [None]
  - NERVOUS SYSTEM DISORDER [None]
  - SYRINGOMYELIA [None]
  - PAIN [None]
